FAERS Safety Report 6594755-8 (Version None)
Quarter: 2010Q1

REPORT INFORMATION
  Report Type: 
  Country: None (occurrence: None)
  Receive Date: 20100222
  Receipt Date: 20100211
  Transmission Date: 20100710
  Serious: Yes (Other)
  Sender: FDA-Public Use
  Company Number: US-PFIZER INC-2008089783

PATIENT
  Sex: Female
  Weight: 81 kg

DRUGS (6)
  1. CHANTIX [Suspect]
     Indication: SMOKING CESSATION THERAPY
     Dosage: 0.5 MG, 1X/DAY
     Route: 048
     Dates: start: 20080101
  2. CHANTIX [Suspect]
     Dosage: 1 MG, 2X/DAY
     Route: 048
  3. TRAZODONE [Concomitant]
     Dosage: 50 MG, 2X/DAY
  4. FOLIC ACID [Concomitant]
     Dosage: 600 MCG, DAILY
  5. PERCOCET [Concomitant]
     Indication: PAIN
     Dosage: 10/325 MG, 3X/DAY
  6. PROZAC [Concomitant]
     Dosage: 20 MG, UNK

REACTIONS (12)
  - ABDOMINAL PAIN UPPER [None]
  - ANEURYSM [None]
  - AORTIC ANEURYSM [None]
  - CARDIAC ANEURYSM [None]
  - DYSGEUSIA [None]
  - FLATULENCE [None]
  - LUNG DISORDER [None]
  - MYOCARDIAL INFARCTION [None]
  - NAUSEA [None]
  - PULMONARY MASS [None]
  - STRESS [None]
  - SURGERY [None]
